FAERS Safety Report 4402072-7 (Version None)
Quarter: 2004Q3

REPORT INFORMATION
  Report Type: 
  Country: None (occurrence: None)
  Receive Date: 20040719
  Receipt Date: 20040719
  Transmission Date: 20050211
  Serious: Yes (Life-Threatening)
  Sender: FDA-Public Use
  Company Number: None

PATIENT
  Age: 83 Year
  Sex: Male
  Weight: 84 kg

DRUGS (21)
  1. TEQUIN [Suspect]
     Indication: PNEUMONIA
     Dosage: 400MG PO Q24 HOURS
     Route: 048
     Dates: start: 20040527
  2. INSULIN (NPH AND REGULAR) [Concomitant]
  3. GLYBURIDE [Concomitant]
  4. PREDNISONE [Concomitant]
  5. ACETAMINOPHEN [Concomitant]
  6. ALBUTEROL [Concomitant]
  7. ASPIRIN [Concomitant]
  8. AZATHIOPRINE [Concomitant]
  9. CAPSAICIN CREAM [Concomitant]
  10. DILTIAZEM [Concomitant]
  11. GABAPENTIN [Concomitant]
  12. IPRATROPIUM BROMIDE [Concomitant]
  13. LANOLIN/MINERAL OIL/PETROLATUM [Concomitant]
  14. NITROGLYCERIN SL [Concomitant]
  15. OMEPRAZOLE [Concomitant]
  16. POLYVINYL ALCOHOL SOLN [Concomitant]
  17. SALIVA ARTIFICIAL LIQUID [Concomitant]
  18. SERTRALINE HCL [Concomitant]
  19. SIMVASTATIN [Concomitant]
  20. TERAZOSIN HCL [Concomitant]
  21. TRAZODONE HCL [Concomitant]

REACTIONS (7)
  - APNOEA [None]
  - BLOOD GLUCOSE DECREASED [None]
  - CARDIO-RESPIRATORY ARREST [None]
  - CREPITATIONS [None]
  - TACHYCARDIA [None]
  - TACHYPNOEA [None]
  - VENTRICULAR FIBRILLATION [None]
